FAERS Safety Report 12183392 (Version 2)
Quarter: 2016Q1

REPORT INFORMATION
  Report Type: Spontaneous
  Country: US (occurrence: US)
  Receive Date: 20160316
  Receipt Date: 20160324
  Transmission Date: 20160526
  Serious: Yes (Other)
  Sender: FDA-Public Use
  Company Number: US-ACTAVIS-2016-05730

PATIENT
  Age: 56 Year
  Sex: Male

DRUGS (1)
  1. MOXIFLOXACIN (WATSON LABORATORIES) [Suspect]
     Active Substance: MOXIFLOXACIN
     Indication: SINUSITIS
     Dosage: UNK
     Route: 065

REACTIONS (3)
  - Myocardial infarction [Unknown]
  - Anaphylactic shock [Unknown]
  - Skin test positive [Unknown]
